FAERS Safety Report 5156420-3 (Version None)
Quarter: 2006Q4

REPORT INFORMATION
  Report Type: 
  Country: None (occurrence: None)
  Receive Date: 20061114
  Receipt Date: 20061101
  Transmission Date: 20070319
  Serious: Yes (Hospitalization)
  Sender: FDA-Public Use
  Company Number: 2006-05559

PATIENT
  Age: 65 Year
  Sex: Female

DRUGS (1)
  1. HYDROCODONE  BITARTRATE /ACETAMINOPHEN 5/500 (WATSON LABORATORIES) (AC [Suspect]
     Indication: PAIN
     Dosage: 1/2 - 1 TABLET, SINGLE, ORAL
     Route: 048
     Dates: start: 20061010, end: 20061010

REACTIONS (6)
  - COLITIS [None]
  - DIZZINESS [None]
  - DRUG HYPERSENSITIVITY [None]
  - HYPERSENSITIVITY [None]
  - RECTAL FISSURE [None]
  - RECTAL HAEMORRHAGE [None]
